FAERS Safety Report 26215959 (Version 1)
Quarter: 2025Q4

REPORT INFORMATION
  Report Type: Spontaneous
  Country: CN (occurrence: CN)
  Receive Date: 20251231
  Receipt Date: 20251231
  Transmission Date: 20260117
  Serious: Yes (Other)
  Sender: BEIGENE
  Company Number: CN-BEONEMEDICINES-BGN-2025-023865

PATIENT
  Age: 43 Year
  Sex: Female
  Weight: 50.15 kg

DRUGS (10)
  1. TISLELIZUMAB [Suspect]
     Active Substance: TISLELIZUMAB
     Indication: Neoplasm malignant
     Dosage: 200 MILLIGRAM
     Dates: start: 20251107, end: 20251108
  2. TISLELIZUMAB [Suspect]
     Active Substance: TISLELIZUMAB
     Dosage: 200 MILLIGRAM
     Route: 041
     Dates: start: 20251107, end: 20251108
  3. TISLELIZUMAB [Suspect]
     Active Substance: TISLELIZUMAB
     Dosage: 200 MILLIGRAM
     Route: 041
     Dates: start: 20251107, end: 20251108
  4. TISLELIZUMAB [Suspect]
     Active Substance: TISLELIZUMAB
     Dosage: 200 MILLIGRAM
     Dates: start: 20251107, end: 20251108
  5. NIMOTUZUMAB [Suspect]
     Active Substance: NIMOTUZUMAB
     Indication: Neoplasm malignant
     Dosage: 4 DOSAGE FORM
     Route: 041
     Dates: start: 20251107, end: 20251108
  6. NIMOTUZUMAB [Suspect]
     Active Substance: NIMOTUZUMAB
     Dosage: 4 DOSAGE FORM
     Dates: start: 20251107, end: 20251108
  7. CISPLATIN [Suspect]
     Active Substance: CISPLATIN
     Indication: Neoplasm malignant
     Dosage: 60 MILLIGRAM
     Dates: start: 20251107, end: 20251107
  8. CISPLATIN [Suspect]
     Active Substance: CISPLATIN
     Dosage: 60 MILLIGRAM
     Route: 041
     Dates: start: 20251107, end: 20251107
  9. CISPLATIN [Suspect]
     Active Substance: CISPLATIN
     Dosage: 50 MILLIGRAM
     Dates: start: 20251108, end: 20251108
  10. CISPLATIN [Suspect]
     Active Substance: CISPLATIN
     Dosage: 50 MILLIGRAM
     Route: 041
     Dates: start: 20251108, end: 20251108

REACTIONS (2)
  - Myelosuppression [Unknown]
  - White blood cell count decreased [Unknown]

NARRATIVE: CASE EVENT DATE: 20251202
